FAERS Safety Report 19685767 (Version 1)
Quarter: 2021Q3

REPORT INFORMATION
  Report Type: Spontaneous
  Country: US (occurrence: US)
  Receive Date: 20210811
  Receipt Date: 20210811
  Transmission Date: 20211014
  Serious: Yes (Hospitalization, Other)
  Sender: FDA-Public Use
  Company Number: US-GLAXOSMITHKLINE-USCH2021GSK053351

PATIENT
  Sex: Female

DRUGS (2)
  1. COCAINE [Concomitant]
     Active Substance: COCAINE
     Indication: PRODUCT USED FOR UNKNOWN INDICATION
     Dosage: UNK
  2. IBUPROFEN. [Suspect]
     Active Substance: IBUPROFEN
     Indication: PRODUCT USED FOR UNKNOWN INDICATION
     Dosage: UNK

REACTIONS (8)
  - Unresponsive to stimuli [Unknown]
  - Intentional overdose [Unknown]
  - Hypocalcaemia [Unknown]
  - Respiratory distress [Unknown]
  - Toxicity to various agents [Unknown]
  - Hypothermia [Unknown]
  - Metabolic acidosis [Unknown]
  - Bradycardia [Unknown]
